FAERS Safety Report 8353633-4 (Version None)
Quarter: 2012Q2

REPORT INFORMATION
  Report Type: 
  Country: None (occurrence: None)
  Receive Date: 20120511
  Receipt Date: 20110822
  Transmission Date: 20120825
  Serious: No
  Sender: FDA-Public Use
  Company Number: US-GLAXOSMITHKLINE-A0942710A

PATIENT
  Age: 70 Year
  Sex: Female

DRUGS (1)
  1. TYKERB [Suspect]
     Indication: NEOPLASM MALIGNANT
     Dosage: 250MG FIVE TIMES PER DAY
     Route: 048
     Dates: start: 20110601, end: 20110701

REACTIONS (1)
  - DRUG INEFFECTIVE [None]
